FAERS Safety Report 7630893-6 (Version None)
Quarter: 2011Q3

REPORT INFORMATION
  Report Type: 
  Country: None (occurrence: None)
  Receive Date: 20110724
  Receipt Date: 20110711
  Transmission Date: 20111222
  Serious: Yes (Hospitalization)
  Sender: FDA-Public Use
  Company Number: DE-MYLANLABS-2011S1014384

PATIENT
  Age: 74 Year
  Sex: Female

DRUGS (19)
  1. SIMVA [Concomitant]
     Indication: PRODUCT USED FOR UNKNOWN INDICATION
     Route: 048
  2. PROMETHAZINE [Concomitant]
     Indication: PRODUCT USED FOR UNKNOWN INDICATION
     Route: 048
     Dates: start: 20100921, end: 20110110
  3. ABILIFY [Concomitant]
     Indication: PRODUCT USED FOR UNKNOWN INDICATION
     Route: 048
     Dates: start: 20101112, end: 20101115
  4. ABILIFY [Concomitant]
     Route: 048
     Dates: start: 20101116, end: 20101214
  5. ABILIFY [Concomitant]
     Route: 048
     Dates: start: 20101215, end: 20101226
  6. DOXEPIN [Suspect]
     Route: 048
     Dates: start: 20110108, end: 20110109
  7. RAMIPRIL [Concomitant]
     Route: 048
     Dates: start: 20100706
  8. ASPIRIN [Concomitant]
     Indication: PRODUCT USED FOR UNKNOWN INDICATION
     Route: 048
     Dates: start: 20101117
  9. PANTOPRAZOLE [Concomitant]
     Indication: PRODUCT USED FOR UNKNOWN INDICATION
     Route: 048
     Dates: start: 20101126
  10. DOXEPIN [Suspect]
     Route: 065
     Dates: start: 20101224, end: 20101228
  11. DOXEPIN [Suspect]
     Route: 048
     Dates: start: 20110106, end: 20110107
  12. TEMAZEPAM [Concomitant]
     Indication: PRODUCT USED FOR UNKNOWN INDICATION
     Route: 048
     Dates: start: 20101012, end: 20110111
  13. DOXEPIN [Suspect]
     Indication: PRODUCT USED FOR UNKNOWN INDICATION
     Route: 065
     Dates: start: 20101212
  14. DOXEPIN [Suspect]
     Route: 065
     Dates: start: 20101213, end: 20101220
  15. RAMIPRIL [Concomitant]
     Indication: PRODUCT USED FOR UNKNOWN INDICATION
     Route: 048
     Dates: end: 20100705
  16. DOXEPIN [Suspect]
     Route: 065
     Dates: start: 20101221, end: 20101223
  17. DOXEPIN [Suspect]
     Route: 048
     Dates: start: 20101230, end: 20110105
  18. METOPROLOL TARTRATE [Concomitant]
     Indication: PRODUCT USED FOR UNKNOWN INDICATION
     Route: 048
     Dates: start: 20101117
  19. DOXEPIN [Suspect]
     Route: 048
     Dates: start: 20101229

REACTIONS (2)
  - HALLUCINATION [None]
  - DELUSION [None]
